FAERS Safety Report 6352845-9 (Version None)
Quarter: 2009Q3

REPORT INFORMATION
  Report Type: 
  Country: None (occurrence: None)
  Receive Date: 20090912
  Receipt Date: 20090622
  Transmission Date: 20100115
  Serious: No
  Sender: FDA-Public Use
  Company Number: US-ABBOTT-08P-163-0448326-00

PATIENT
  Sex: Male
  Weight: 53.118 kg

DRUGS (9)
  1. HUMIRA [Suspect]
     Indication: CROHN'S DISEASE
     Dosage: SYRINGE
     Route: 058
     Dates: start: 20080407, end: 20080407
  2. HUMIRA [Suspect]
     Dosage: PEN
     Route: 058
     Dates: start: 20080418, end: 20080418
  3. HUMIRA [Suspect]
     Route: 058
  4. METRONIDAZOLE [Concomitant]
     Indication: FISTULA
     Route: 048
  5. METRONIDAZOLE [Concomitant]
     Indication: ANORECTAL DISORDER
  6. CIPROFLAXACIN [Concomitant]
     Indication: FISTULA
     Route: 048
  7. CIPROFLAXACIN [Concomitant]
     Indication: ANORECTAL DISORDER
  8. LANSOPRAZOLE [Concomitant]
     Indication: GASTROOESOPHAGEAL REFLUX DISEASE
     Route: 048
  9. MULTITAMIN [Concomitant]
     Indication: DRUG USE FOR UNKNOWN INDICATION
     Route: 048

REACTIONS (3)
  - INCORRECT DOSE ADMINISTERED [None]
  - INJECTION SITE EXTRAVASATION [None]
  - WRONG TECHNIQUE IN DRUG USAGE PROCESS [None]
